FAERS Safety Report 4703573-4 (Version None)
Quarter: 2005Q2

REPORT INFORMATION
  Report Type: 
  Country: None (occurrence: None)
  Receive Date: 20050628
  Receipt Date: 20050614
  Transmission Date: 20051028
  Serious: Yes (Other)
  Sender: FDA-Public Use
  Company Number: ATO-05-0228

PATIENT
  Age: 71 Year
  Weight: 71.4869 kg

DRUGS (17)
  1. TRISENOX [Suspect]
     Indication: MULTIPLE MYELOMA
     Dosage: 8.98 MG (8, 98 MG, UNKNOWN), IVI
     Route: 042
     Dates: start: 20050302
  2. BORTEZOMIB [Suspect]
     Indication: MULTIPLE MYELOMA
     Dosage: 671 MG (671 MG, UNKNOWN); IVI
     Route: 042
     Dates: start: 20050301
  3. DARBOPETIN [Concomitant]
  4. ASCORBIC ACID [Concomitant]
  5. PAMIDRONATE DISODIUM [Concomitant]
  6. ARANESP [Concomitant]
  7. VICODIN [Concomitant]
  8. ULTRAM [Concomitant]
  9. OXYCONTIN [Concomitant]
  10. POTASSIUM CHLORIDE [Concomitant]
  11. LASIX [Concomitant]
  12. NEURONTIN [Concomitant]
  13. COUMADIN [Concomitant]
  14. COZAAR [Concomitant]
  15. ADVIL [Concomitant]
  16. VITAMIN E [Concomitant]
  17. MULTI-VITAMINS [Concomitant]

REACTIONS (4)
  - CARDIOMEGALY [None]
  - CARDIOMYOPATHY [None]
  - EJECTION FRACTION DECREASED [None]
  - OEDEMA PERIPHERAL [None]
